FAERS Safety Report 13035565 (Version 1)
Quarter: 2016Q4

REPORT INFORMATION
  Report Type: Spontaneous
  Country: GB (occurrence: GB)
  Receive Date: 20161216
  Receipt Date: 20161216
  Transmission Date: 20170207
  Serious: Yes (Hospitalization)
  Sender: FDA-Public Use
  Company Number: GB-BION-005780

PATIENT
  Sex: Male

DRUGS (2)
  1. MEROPENEM. [Interacting]
     Active Substance: MEROPENEM
  2. VALPROIC ACID UNKNOWN PRODUCT [Suspect]
     Active Substance: VALPROIC ACID
     Indication: PRODUCT USED FOR UNKNOWN INDICATION

REACTIONS (4)
  - Intentional overdose [Unknown]
  - Pneumonia aspiration [Unknown]
  - Coma [Recovered/Resolved]
  - Drug interaction [Unknown]
